FAERS Safety Report 23074011 (Version 1)
Quarter: 2023Q4

REPORT INFORMATION
  Report Type: Spontaneous
  Country: US (occurrence: US)
  Receive Date: 20231017
  Receipt Date: 20231017
  Transmission Date: 20240110
  Serious: Yes (Hospitalization)
  Sender: FDA-Public Use
  Company Number: US-SCALL-2023-US-033762

PATIENT
  Sex: Female

DRUGS (1)
  1. SUCRALFATE ORAL SUSPENSION [Suspect]
     Active Substance: SUCRALFATE
     Indication: Product used for unknown indication
     Dosage: FOUR TIMES PER DAY ON AN EMPTY STOMACH
     Route: 048
     Dates: start: 20220815, end: 20231013

REACTIONS (1)
  - Abdominal pain upper [Not Recovered/Not Resolved]

NARRATIVE: CASE EVENT DATE: 20221001
